FAERS Safety Report 23337806 (Version 1)
Quarter: 2023Q4

REPORT INFORMATION
  Report Type: Spontaneous
  Country: RS (occurrence: RS)
  Receive Date: 20231226
  Receipt Date: 20231226
  Transmission Date: 20240110
  Serious: Yes (Other)
  Sender: FDA-Public Use
  Company Number: RS-GLAXOSMITHKLINE-RS2023EME179274

PATIENT

DRUGS (1)
  1. ANORO ELLIPTA [Suspect]
     Active Substance: UMECLIDINIUM BROMIDE\VILANTEROL TRIFENATATE
     Indication: Chronic obstructive pulmonary disease
     Dosage: 1 PUFF(S), QD, 22MG+55MG
     Route: 055
     Dates: start: 20230908, end: 20230912

REACTIONS (14)
  - Upper respiratory tract infection [Unknown]
  - Pharyngitis [Unknown]
  - Nasopharyngitis [Unknown]
  - Sinusitis [Unknown]
  - Headache [Unknown]
  - Tremor [Unknown]
  - Dizziness [Unknown]
  - Cough [Unknown]
  - Oral pain [Unknown]
  - Dysphonia [Unknown]
  - Dry mouth [Unknown]
  - Rash [Unknown]
  - Bronchospasm paradoxical [Unknown]
  - Urinary tract infection [Unknown]

NARRATIVE: CASE EVENT DATE: 20230912
